FAERS Safety Report 11521881 (Version 1)
Quarter: 2015Q3

REPORT INFORMATION
  Report Type: Spontaneous
  Country: CH (occurrence: DE)
  Receive Date: 20150918
  Receipt Date: 20150918
  Transmission Date: 20151125
  Serious: Yes (Death)
  Sender: FDA-Public Use
  Company Number: CH-ASTRAZENECA-2015SE88167

PATIENT
  Age: 74 Year
  Sex: Female
  Weight: 90 kg

DRUGS (6)
  1. ZOLEDRONIC ACID [Suspect]
     Active Substance: ZOLEDRONIC ACID
     Indication: ADENOCARCINOMA
     Route: 042
     Dates: start: 20150331, end: 20150827
  2. FASLODEX [Suspect]
     Active Substance: FULVESTRANT
     Indication: ADENOCARCINOMA
     Route: 030
     Dates: start: 20150716
  3. ZOLEDRONIC ACID [Suspect]
     Active Substance: ZOLEDRONIC ACID
     Indication: METASTASES TO BONE
     Route: 042
     Dates: start: 20150331, end: 20150827
  4. FASLODEX [Suspect]
     Active Substance: FULVESTRANT
     Indication: METASTASES TO MENINGES
     Route: 030
     Dates: start: 20150716
  5. FASLODEX [Suspect]
     Active Substance: FULVESTRANT
     Indication: METASTASES TO BONE
     Route: 030
     Dates: start: 20150716
  6. ZOLEDRONIC ACID [Suspect]
     Active Substance: ZOLEDRONIC ACID
     Indication: METASTASES TO MENINGES
     Route: 042
     Dates: start: 20150331, end: 20150827

REACTIONS (1)
  - Hepatic failure [Fatal]

NARRATIVE: CASE EVENT DATE: 20150820
